FAERS Safety Report 9982238 (Version 2)
Quarter: 2015Q1

REPORT INFORMATION
  Report Type: Report from Study
  Country: US (occurrence: US)
  Receive Date: 20140307
  Receipt Date: 20150216
  Transmission Date: 20150721
  Serious: No
  Sender: FDA-Public Use
  Company Number: US-ABBVIE-13P-163-1177981-00

PATIENT
  Age: 18 Year
  Sex: Female

DRUGS (5)
  1. HUMIRA [Suspect]
     Active Substance: ADALIMUMAB
     Dates: start: 20131122, end: 20131122
  2. HUMIRA [Suspect]
     Active Substance: ADALIMUMAB
     Indication: CROHN^S DISEASE
     Dosage: LOADING DOSE
     Dates: start: 20131108, end: 20131108
  3. HUMIRA [Suspect]
     Active Substance: ADALIMUMAB
     Route: 058
  4. PENTASA [Concomitant]
     Active Substance: MESALAMINE
     Indication: PRODUCT USED FOR UNKNOWN INDICATION
  5. PREDNISONE. [Concomitant]
     Active Substance: PREDNISONE
     Indication: PRODUCT USED FOR UNKNOWN INDICATION

REACTIONS (4)
  - Fear of injection [Unknown]
  - Injection site pain [Recovered/Resolved]
  - Injection site bruising [Recovered/Resolved]
  - Nervousness [Recovered/Resolved]

NARRATIVE: CASE EVENT DATE: 20131108
